APPROVED DRUG PRODUCT: PROMETHAZINE DM
Active Ingredient: DEXTROMETHORPHAN HYDROBROMIDE; PROMETHAZINE HYDROCHLORIDE
Strength: 15MG/5ML;6.25MG/5ML
Dosage Form/Route: SYRUP;ORAL
Application: A040649 | Product #001 | TE Code: AA
Applicant: PAI HOLDINGS LLC DBA PHARMACEUTICAL ASSOCIATES INC AND DBA PAI PHARMA
Approved: Feb 14, 2006 | RLD: No | RS: Yes | Type: RX